FAERS Safety Report 20633019 (Version 5)
Quarter: 2022Q3

REPORT INFORMATION
  Report Type: Spontaneous
  Country: CA (occurrence: CA)
  Receive Date: 20220324
  Receipt Date: 20220803
  Transmission Date: 20221026
  Serious: Yes (Death, Other)
  Sender: FDA-Public Use
  Company Number: CA-PFIZER INC-202101240760

PATIENT
  Age: 71 Year
  Sex: Female

DRUGS (5)
  1. RUXIENCE [Suspect]
     Active Substance: RITUXIMAB-PVVR
     Indication: Rheumatoid arthritis
     Dosage: 100 MG (1000 MG DAY 1 AND 15)
     Route: 042
     Dates: start: 20210915
  2. RUXIENCE [Suspect]
     Active Substance: RITUXIMAB-PVVR
     Dosage: 1 DF 1000 MG DAY 1 AND 15
     Route: 042
     Dates: start: 20210915, end: 20211001
  3. RUXIENCE [Suspect]
     Active Substance: RITUXIMAB-PVVR
     Dosage: 1 DF 1000 MG DAY 1 AND 15
     Route: 042
     Dates: start: 20211001
  4. RUXIENCE [Suspect]
     Active Substance: RITUXIMAB-PVVR
     Dosage: 1000 MG DAY 1 AND 15
     Route: 042
     Dates: start: 20220406, end: 20220420
  5. RUXIENCE [Suspect]
     Active Substance: RITUXIMAB-PVVR
     Dosage: 1000 MG DAY 1 AND 15
     Route: 042
     Dates: start: 20220420

REACTIONS (9)
  - Death [Fatal]
  - Cataract [Unknown]
  - Erythema [Recovered/Resolved]
  - Feeling hot [Recovered/Resolved]
  - Insomnia [Recovered/Resolved]
  - Fall [Unknown]
  - Joint dislocation [Unknown]
  - Fracture [Unknown]
  - Walking aid user [Unknown]

NARRATIVE: CASE EVENT DATE: 20210915
